FAERS Safety Report 11780267 (Version 1)
Quarter: 2015Q4

REPORT INFORMATION
  Report Type: Spontaneous
  Country: US (occurrence: US)
  Receive Date: 20151126
  Receipt Date: 20151126
  Transmission Date: 20160305
  Serious: No
  Sender: FDA-Public Use
  Company Number: US-JNJFOC-20151000465

PATIENT
  Age: 3 Year
  Sex: Female

DRUGS (1)
  1. CHILDRENS TYLENOL [Suspect]
     Active Substance: ACETAMINOPHEN
     Indication: PHARYNGITIS STREPTOCOCCAL
     Dosage: LITTLE MORE THAN 5ML, NOT QUITE 7ML, ONCE
     Route: 048
     Dates: start: 20150930, end: 20150930

REACTIONS (3)
  - Wrong technique in product usage process [Unknown]
  - Product use issue [Unknown]
  - Incorrect dose administered [Unknown]

NARRATIVE: CASE EVENT DATE: 20150930
